FAERS Safety Report 16726082 (Version 1)
Quarter: 2019Q3

REPORT INFORMATION
  Report Type: Spontaneous
  Country: FR (occurrence: FR)
  Receive Date: 20190821
  Receipt Date: 20190821
  Transmission Date: 20191005
  Serious: Yes (Hospitalization, Other)
  Sender: FDA-Public Use
  Company Number: FR-MYLANLABS-06P-056-0776122-00

PATIENT
  Age: 81 Year
  Sex: Male
  Weight: 65 kg

DRUGS (9)
  1. MOPRAL                             /00661201/ [Concomitant]
     Active Substance: OMEPRAZOLE SODIUM
     Indication: ILL-DEFINED DISORDER
     Dosage: 20 MILLIGRAM, QD
     Route: 048
     Dates: end: 20051013
  2. FLOXYFRAL [Suspect]
     Active Substance: FLUVOXAMINE
     Indication: ILL-DEFINED DISORDER
     Dosage: DAILY DOSE: 100 MILLIGRAM(S)
     Route: 048
     Dates: start: 20050516, end: 20051013
  3. IXPRIM [Suspect]
     Active Substance: ACETAMINOPHEN\TRAMADOL HYDROCHLORIDE
     Indication: ILL-DEFINED DISORDER
     Dosage: 1 DOSAGE FORM, PRN
     Route: 048
     Dates: start: 20050415, end: 20051013
  4. FONZYLANE [Concomitant]
     Active Substance: BUFLOMEDIL
     Indication: ILL-DEFINED DISORDER
     Dosage: 600 MILLIGRAM, QD
     Route: 048
     Dates: end: 20051013
  5. MOVICOL [Concomitant]
     Active Substance: POLYETHYLENE GLYCOL 3350\POTASSIUM CHLORIDE\SODIUM BICARBONATE\SODIUM CHLORIDE
     Indication: ILL-DEFINED DISORDER
     Dosage: UNK UNK, PRN (DAILY DOSE: AS NEEDED  )
     Route: 048
     Dates: end: 20051013
  6. TERCIAN                            /00759301/ [Suspect]
     Active Substance: CYAMEMAZINE
     Indication: ILL-DEFINED DISORDER
     Dosage: DAILY DOSE: 50 MILLIGRAM(S)
     Route: 048
     Dates: start: 20050516, end: 20051013
  7. NOOTROPYL [Concomitant]
     Active Substance: PIRACETAM
     Indication: ILL-DEFINED DISORDER
     Dosage: 2400 MILLIGRAM, QD(DAILY DOSE: 2400 MILLIGRAM(S))
     Route: 048
     Dates: start: 20050115, end: 20051013
  8. BIPERIDYS [Concomitant]
     Active Substance: DOMPERIDONE
     Indication: ILL-DEFINED DISORDER
     Dosage: 3 DOSAGE FORM, QD(DAILY DOSE: 3 UNKNOWN )
     Route: 048
     Dates: end: 20051013
  9. TARDYFERON [Concomitant]
     Active Substance: FERROUS SULFATE
     Indication: ILL-DEFINED DISORDER
     Dosage: DAILY DOSE:  UNKNOWN
     Route: 048
     Dates: end: 20051013

REACTIONS (7)
  - Gait disturbance [Recovered/Resolved]
  - Altered state of consciousness [Recovered/Resolved]
  - Somnolence [Recovered/Resolved]
  - Renal impairment [Unknown]
  - Asthenia [Recovered/Resolved]
  - Fall [Recovered/Resolved]
  - Disorientation [Recovered/Resolved]

NARRATIVE: CASE EVENT DATE: 200510
